FAERS Safety Report 11116185 (Version 1)
Quarter: 2015Q2

REPORT INFORMATION
  Report Type: Spontaneous
  Country: US (occurrence: None)
  Receive Date: 20150514
  Receipt Date: 20150514
  Transmission Date: 20150821
  Serious: Yes (Disabling)
  Sender: FDA-Public Use
  Company Number: None

PATIENT
  Age: 54 Year
  Sex: Female
  Weight: 54.43 kg

DRUGS (17)
  1. LEVOTHYROXINE [Concomitant]
     Active Substance: LEVOTHYROXINE
  2. DAILY VITAMIN [Concomitant]
     Active Substance: VITAMINS
  3. CHROMIUM [Concomitant]
     Active Substance: CHROMIC CHLORIDE\CHROMIUM
  4. LEVOFLOXACIN. [Suspect]
     Active Substance: LEVOFLOXACIN
     Indication: URINARY TRACT INFECTION
     Dosage: 1 PILL, ONCE DAILY, TAKEN BY MOUTH
     Route: 048
     Dates: start: 20150405, end: 20150411
  5. GINGER ROOT [Concomitant]
  6. SELENIUM [Concomitant]
     Active Substance: SELENIUM
  7. VITAMIN E [Concomitant]
     Active Substance: .ALPHA.-TOCOPHEROL
  8. VESIVARE [Concomitant]
  9. DIM (CRUCIFEROUS VEGETABLES) [Concomitant]
  10. VALACYCLIVIR [Concomitant]
  11. NAPROXEN. [Concomitant]
     Active Substance: NAPROXEN
  12. ORGANIC MATCHA [Concomitant]
  13. D3 2000 IU [Concomitant]
  14. OMEGA 3 [Concomitant]
     Active Substance: OMEGA-3 FATTY ACIDS
  15. MAGNESIUM [Concomitant]
     Active Substance: MAGNESIUM
  16. TURMERIC [Concomitant]
     Active Substance: TURMERIC
  17. AZO [Concomitant]
     Active Substance: PHENAZOPYRIDINE HYDROCHLORIDE

REACTIONS (4)
  - Arthralgia [None]
  - Musculoskeletal pain [None]
  - Movement disorder [None]
  - Back pain [None]

NARRATIVE: CASE EVENT DATE: 20150403
